FAERS Safety Report 16266868 (Version 2)
Quarter: 2019Q2

REPORT INFORMATION
  Report Type: Report from Study
  Country: CN (occurrence: CN)
  Receive Date: 20190502
  Receipt Date: 20190522
  Transmission Date: 20190711
  Serious: Yes (Other)
  Sender: FDA-Public Use
  Company Number: CN-JNJFOC-20190437945

PATIENT

DRUGS (2)
  1. INFLIXIMAB, RECOMBINANT [Suspect]
     Active Substance: INFLIXIMAB
     Indication: CROHN^S DISEASE
     Route: 042
  2. AZATHIOPRINE. [Concomitant]
     Active Substance: AZATHIOPRINE
     Indication: CROHN^S DISEASE
     Route: 065

REACTIONS (6)
  - Wolff-Parkinson-White syndrome [Unknown]
  - Upper respiratory tract infection [Unknown]
  - Dermatitis [Unknown]
  - Liver abscess [Unknown]
  - Lung infection [Unknown]
  - Treatment failure [Unknown]
